FAERS Safety Report 9394606 (Version 1)
Quarter: 2013Q3

REPORT INFORMATION
  Report Type: Report from Study
  Country: US (occurrence: US)
  Receive Date: 20130711
  Receipt Date: 20130711
  Transmission Date: 20140515
  Serious: Yes (Hospitalization, Other)
  Sender: FDA-Public Use
  Company Number: PHEH2013US014382

PATIENT
  Sex: Male

DRUGS (2)
  1. DIOVAN [Suspect]
  2. VASOTEC [Suspect]
     Indication: BLOOD PRESSURE ABNORMAL
     Dosage: 20 MG, UNK

REACTIONS (8)
  - Blood pressure increased [Unknown]
  - Eye haemorrhage [Unknown]
  - Blindness transient [Unknown]
  - Feeling abnormal [Unknown]
  - Fluid retention [Unknown]
  - Dry mouth [Unknown]
  - Cough [Unknown]
  - Drug ineffective [Unknown]
